FAERS Safety Report 25579673 (Version 2)
Quarter: 2025Q3

REPORT INFORMATION
  Report Type: Spontaneous
  Country: US (occurrence: US)
  Receive Date: 20250718
  Receipt Date: 20250723
  Transmission Date: 20251021
  Serious: Yes (Hospitalization, Other)
  Sender: BAUSCH AND LOMB
  Company Number: US-BAUSCH-BH-2025-015058

PATIENT
  Age: 74 Year
  Sex: Male

DRUGS (8)
  1. RIFAXIMIN [Suspect]
     Active Substance: RIFAXIMIN
     Indication: Product used for unknown indication
  2. LACTULOSE [Suspect]
     Active Substance: LACTULOSE
     Indication: Product used for unknown indication
     Route: 065
  3. CALCIUM GLUCONATE [Concomitant]
     Active Substance: CALCIUM GLUCONATE
     Indication: Hyperkalaemia
  4. ALBUTEROL [Concomitant]
     Active Substance: ALBUTEROL
     Indication: Hyperkalaemia
  5. INSULIN NOS [Concomitant]
     Active Substance: INSULIN NOS
     Indication: Hyperkalaemia
  6. GLUCAGON [Concomitant]
     Active Substance: GLUCAGON
     Indication: Hyperkalaemia
  7. LEVOPHED [Concomitant]
     Active Substance: NOREPINEPHRINE BITARTRATE
     Indication: Bradycardia
  8. AMIODARONE [Concomitant]
     Active Substance: AMIODARONE
     Indication: Atrial fibrillation

REACTIONS (3)
  - Fluid imbalance [Unknown]
  - BRASH syndrome [Unknown]
  - Condition aggravated [Unknown]
